FAERS Safety Report 23866806 (Version 1)
Quarter: 2024Q2

REPORT INFORMATION
  Report Type: Spontaneous
  Country: PT (occurrence: PT)
  Receive Date: 20240517
  Receipt Date: 20240517
  Transmission Date: 20240716
  Serious: Yes (Hospitalization, Other)
  Sender: FDA-Public Use
  Company Number: PT-GSK-PT2024GSK061133

PATIENT

DRUGS (1)
  1. PROPAFENONE [Suspect]
     Active Substance: PROPAFENONE
     Indication: Product used for unknown indication
     Dosage: 6000 MG
     Route: 048

REACTIONS (12)
  - Toxicity to various agents [Unknown]
  - Seizure [Unknown]
  - Bradycardia [Unknown]
  - Hypotension [Unknown]
  - Cardiac arrest [Unknown]
  - Hypernatraemia [Unknown]
  - Metabolic acidosis [Unknown]
  - Hyperlactacidaemia [Unknown]
  - Cardiotoxicity [Unknown]
  - Neurotoxicity [Unknown]
  - Coma [Unknown]
  - Overdose [Unknown]
